FAERS Safety Report 8176663-4 (Version None)
Quarter: 2012Q1

REPORT INFORMATION
  Report Type: 
  Country: None (occurrence: None)
  Receive Date: 20120301
  Receipt Date: 20120220
  Transmission Date: 20120608
  Serious: Yes (Death, Hospitalization, Other)
  Sender: FDA-Public Use
  Company Number: JP-SANOFI-AVENTIS-2011SA080334

PATIENT
  Age: 77 Year
  Sex: Male

DRUGS (2)
  1. TAXOTERE [Suspect]
     Route: 041
     Dates: start: 20111026, end: 20111122
  2. NEDAPLATIN [Suspect]
     Route: 065
     Dates: start: 20111026, end: 20111122

REACTIONS (16)
  - SEPSIS [None]
  - DYSPNOEA [None]
  - FEBRILE NEUTROPENIA [None]
  - PYREXIA [None]
  - ANAEMIA [None]
  - SMALL INTESTINAL HAEMORRHAGE [None]
  - MUSCULAR WEAKNESS [None]
  - HAEMOPTYSIS [None]
  - MALAISE [None]
  - HEMIPLEGIA [None]
  - INTERSTITIAL LUNG DISEASE [None]
  - RESPIRATORY FAILURE [None]
  - MELAENA [None]
  - PLATELET COUNT DECREASED [None]
  - ACUTE RESPIRATORY DISTRESS SYNDROME [None]
  - DISSEMINATED INTRAVASCULAR COAGULATION [None]
